FAERS Safety Report 17094556 (Version 1)
Quarter: 2019Q4

REPORT INFORMATION
  Report Type: Spontaneous
  Country: FR (occurrence: FR)
  Receive Date: 20191129
  Receipt Date: 20191129
  Transmission Date: 20200122
  Serious: Yes (Other)
  Sender: FDA-Public Use
  Company Number: FR-CANTON LABORATORIES, LLC-2077312

PATIENT
  Age: 50 Year
  Sex: Female

DRUGS (2)
  1. BIPRETERAX [Concomitant]
     Active Substance: INDAPAMIDE\PERINDOPRIL
     Route: 065
  2. NAPROSYN [Suspect]
     Active Substance: NAPROXEN
     Indication: PAIN IN EXTREMITY
     Route: 048
     Dates: start: 201602, end: 201602

REACTIONS (3)
  - Lip oedema [Recovered/Resolved]
  - Palatal oedema [Recovered/Resolved]
  - Erythema [Recovered/Resolved]

NARRATIVE: CASE EVENT DATE: 201602
